FAERS Safety Report 10189012 (Version 3)
Quarter: 2014Q2

REPORT INFORMATION
  Report Type: Spontaneous
  Country: US (occurrence: US)
  Receive Date: 20140522
  Receipt Date: 20140630
  Transmission Date: 20141212
  Serious: Yes (Other)
  Sender: FDA-Public Use
  Company Number: US-BAYER-2014-070130

PATIENT
  Age: 22 Year
  Sex: Female
  Weight: 59.86 kg

DRUGS (2)
  1. MIRENA [Suspect]
     Indication: CONTRACEPTION
     Dosage: 20 MCG/24HR, CONT
     Route: 015
     Dates: start: 20140508, end: 20140508
  2. MIRENA [Suspect]
     Indication: CONTRACEPTION
     Dosage: 20 MCG/24HR, CONT
     Route: 015
     Dates: start: 20140508, end: 20140508

REACTIONS (3)
  - Embedded device [Recovered/Resolved]
  - Device deployment issue [Recovered/Resolved]
  - Complication of device insertion [Recovered/Resolved]
